FAERS Safety Report 10903368 (Version 1)
Quarter: 2015Q1

REPORT INFORMATION
  Report Type: Spontaneous
  Country: US (occurrence: None)
  Receive Date: 20150304
  Receipt Date: 20150304
  Transmission Date: 20150721
  Serious: Yes (Other)
  Sender: FDA-Public Use
  Company Number: 2015AKN00109

PATIENT
  Age: 27 Year
  Sex: Male

DRUGS (7)
  1. CLONAZEPAM. [Concomitant]
     Active Substance: CLONAZEPAM
  2. VITAMIN D-3 [Concomitant]
  3. FISH OIL [Concomitant]
     Active Substance: FISH OIL
  4. MYORISAN [Suspect]
     Active Substance: ISOTRETINOIN
     Indication: ACNE
     Route: 048
     Dates: start: 20150120, end: 20150121
  5. MELATONIN [Concomitant]
     Active Substance: MELATONIN
  6. VITAMIN B12 [Concomitant]
     Active Substance: CYANOCOBALAMIN
  7. RISPERIDONE. [Concomitant]
     Active Substance: RISPERIDONE

REACTIONS (1)
  - Depression [None]

NARRATIVE: CASE EVENT DATE: 20150121
